FAERS Safety Report 10564303 (Version 2)
Quarter: 2014Q4

REPORT INFORMATION
  Report Type: Spontaneous
  Country: US (occurrence: US)
  Receive Date: 20141104
  Receipt Date: 20141104
  Transmission Date: 20150529
  Serious: Yes (Hospitalization)
  Sender: FDA-Public Use
  Company Number: US-ACTELION-A-NJ2014-106233

PATIENT
  Age: 53 Year
  Sex: Male

DRUGS (1)
  1. VALCHLOR [Suspect]
     Active Substance: MECHLORETHAMINE
     Indication: MYCOSIS FUNGOIDES
     Dosage: 0.016 %, UNK
     Route: 061
     Dates: start: 20140307

REACTIONS (6)
  - Dry skin [Unknown]
  - Pulmonary mass [Recovering/Resolving]
  - Application site erythema [Unknown]
  - Lung operation [Recovering/Resolving]
  - Application site pruritus [Unknown]
  - Skin irritation [Unknown]

NARRATIVE: CASE EVENT DATE: 20141006
